FAERS Safety Report 5703061-2 (Version None)
Quarter: 2008Q2

REPORT INFORMATION
  Report Type: 
  Country: None (occurrence: None)
  Receive Date: 20080408
  Receipt Date: 20080328
  Transmission Date: 20081010
  Serious: Yes (Life-Threatening)
  Sender: FDA-Public Use
  Company Number: 2008JP001008

PATIENT
  Sex: Female

DRUGS (4)
  1. TACROLIMUS [Suspect]
     Indication: LUPUS NEPHRITIS
     Dosage: 3 MG, /D, ORAL
     Route: 048
     Dates: end: 20080208
  2. PREDNISOLONE [Concomitant]
  3. SUCRALFATE [Concomitant]
  4. ALFAROL (ALFACALCIDOL) [Concomitant]

REACTIONS (1)
  - COLON CANCER [None]
